FAERS Safety Report 4453471-9 (Version None)
Quarter: 2004Q3

REPORT INFORMATION
  Report Type: 
  Country: None (occurrence: None)
  Receive Date: 20040920
  Receipt Date: 20040823
  Transmission Date: 20050211
  Serious: Yes (Hospitalization)
  Sender: FDA-Public Use
  Company Number: JP-MERCK-0408USA02192

PATIENT
  Age: 65 Year
  Sex: Male

DRUGS (6)
  1. MUCOSOLVAN [Concomitant]
     Route: 048
     Dates: start: 20030101
  2. PULMICORT [Concomitant]
     Route: 055
     Dates: start: 20030101
  3. MUCODYNE [Concomitant]
     Route: 048
     Dates: start: 20030101
  4. SINGULAIR [Suspect]
     Indication: ASTHMA
     Route: 048
     Dates: start: 20030101, end: 20040810
  5. THEO-DUR [Concomitant]
     Route: 048
     Dates: start: 20030101
  6. HOKUNALIN [Concomitant]
     Route: 061
     Dates: start: 20030101

REACTIONS (14)
  - ASTHMA [None]
  - BACTERIA URINE [None]
  - DYSURIA [None]
  - EOSINOPHILIC CYSTITIS [None]
  - LYMPHOCYTE PERCENTAGE DECREASED [None]
  - POLLAKIURIA [None]
  - PROSTATIC SPECIFIC ANTIGEN INCREASED [None]
  - PROSTATITIS [None]
  - PROTEIN URINE PRESENT [None]
  - RED BLOOD CELL SEDIMENTATION RATE INCREASED [None]
  - RED BLOOD CELLS URINE [None]
  - URINARY CASTS [None]
  - URINARY SEDIMENT ABNORMAL [None]
  - URINE ANALYSIS ABNORMAL [None]
